FAERS Safety Report 10159261 (Version 2)
Quarter: 2014Q2

REPORT INFORMATION
  Report Type: Spontaneous
  Country: US (occurrence: US)
  Receive Date: 20140508
  Receipt Date: 20140529
  Transmission Date: 20141212
  Serious: Yes (Other)
  Sender: FDA-Public Use
  Company Number: US-AMGEN-USASP2014032267

PATIENT
  Age: 67 Year
  Sex: Female
  Weight: 75.74 kg

DRUGS (5)
  1. NPLATE [Suspect]
     Indication: IMMUNE THROMBOCYTOPENIC PURPURA
     Dosage: 150 MUG, QWK
     Route: 058
     Dates: start: 20131029
  2. ATENOLOL [Concomitant]
     Dosage: 25 MG, QD
     Route: 048
     Dates: start: 20120402
  3. ENALAPRIL MALEATE [Concomitant]
     Dosage: 10 MG, QD
     Route: 048
     Dates: start: 20121121
  4. MELOXICAM [Concomitant]
     Dosage: 15 MG, QD
     Route: 048
     Dates: start: 20130228
  5. OMEPRAZOLE [Concomitant]
     Dosage: 40 MG, QD
     Route: 048
     Dates: start: 20120529

REACTIONS (22)
  - Herpes zoster [Not Recovered/Not Resolved]
  - Angina pectoris [Unknown]
  - Cardiac failure congestive [Unknown]
  - Diabetes mellitus [Unknown]
  - Accelerated hypertension [Unknown]
  - Axillary mass [Unknown]
  - Anaemia [Unknown]
  - Chest pain [Unknown]
  - Constipation [Unknown]
  - Arthritis [Unknown]
  - Vertigo positional [Unknown]
  - Dyspnoea [Unknown]
  - Oedema [Unknown]
  - Thrombocytopenia [Unknown]
  - Purpura [Unknown]
  - Dermal cyst [Unknown]
  - Tenderness [Unknown]
  - Costochondritis [Unknown]
  - Pain [Unknown]
  - Insomnia [Unknown]
  - Abdominal pain [Unknown]
  - Myalgia [Unknown]
